FAERS Safety Report 4374167-8 (Version None)
Quarter: 2004Q2

REPORT INFORMATION
  Report Type: 
  Country: None (occurrence: None)
  Receive Date: 20040604
  Receipt Date: 20040527
  Transmission Date: 20050107
  Serious: Yes (Hospitalization)
  Sender: FDA-Public Use
  Company Number: US-JNJFOC-20040506818

PATIENT
  Sex: Male

DRUGS (1)
  1. LEVAQUIN [Suspect]
     Dosage: 750 MG

REACTIONS (1)
  - HOSPITALISATION [None]
